FAERS Safety Report 6085350-8 (Version None)
Quarter: 2009Q1

REPORT INFORMATION
  Report Type: 
  Country: None (occurrence: None)
  Receive Date: 20090220
  Receipt Date: 20090210
  Transmission Date: 20090719
  Serious: Yes (Life-Threatening)
  Sender: FDA-Public Use
  Company Number: JP-PFIZER INC-2009172250

PATIENT

DRUGS (2)
  1. CAMPTOSAR [Suspect]
     Indication: OVARIAN CANCER
     Dosage: 97 MG, UNK
     Route: 041
     Dates: start: 20030601, end: 20031209
  2. CISPLATIN [Concomitant]
     Indication: OVARIAN CANCER
     Dosage: 97 MG, UNK
     Route: 041
     Dates: start: 20030601, end: 20031209

REACTIONS (2)
  - MALIGNANT PLEURAL EFFUSION [None]
  - MYELODYSPLASTIC SYNDROME [None]
